FAERS Safety Report 4393440-0 (Version None)
Quarter: 2004Q3

REPORT INFORMATION
  Report Type: 
  Country: None (occurrence: None)
  Receive Date: 20040707
  Receipt Date: 20040707
  Transmission Date: 20050211
  Serious: Yes (Disabling, Other)
  Sender: FDA-Public Use
  Company Number: None

PATIENT
  Age: 65 Year
  Sex: Female
  Weight: 70.3075 kg

DRUGS (2)
  1. CIPRO [Suspect]
     Indication: CELLULITIS
     Dosage: 4 DOSES CAPSULES
     Dates: start: 20031115, end: 20040110
  2. CIPRO [Suspect]
     Indication: INFECTION
     Dosage: 4 DOSES CAPSULES
     Dates: start: 20031115, end: 20040110

REACTIONS (3)
  - DEPRESSION [None]
  - FATIGUE [None]
  - MYALGIA [None]
